FAERS Safety Report 19565337 (Version 1)
Quarter: 2021Q3

REPORT INFORMATION
  Report Type: Spontaneous
  Country: CN (occurrence: CN)
  Receive Date: 20210716
  Receipt Date: 20210716
  Transmission Date: 20211014
  Serious: No
  Sender: FDA-Public Use
  Company Number: CN-LUPIN PHARMACEUTICALS INC.-2021-11764

PATIENT
  Age: 16 Year
  Sex: Female
  Weight: 35 kg

DRUGS (1)
  1. METFORMIN [Suspect]
     Active Substance: METFORMIN HYDROCHLORIDE
     Indication: DIABETES MELLITUS
     Dosage: 250 MILLIGRAM, TID
     Route: 065

REACTIONS (4)
  - Paradoxical drug reaction [Unknown]
  - Condition aggravated [Unknown]
  - Insulin resistance [Unknown]
  - Glucose tolerance impaired [Unknown]
